FAERS Safety Report 5341994-X (Version None)
Quarter: 2007Q2

REPORT INFORMATION
  Report Type: 
  Country: None (occurrence: None)
  Receive Date: 20070601
  Receipt Date: 20070509
  Transmission Date: 20071010
  Serious: Yes (Hospitalization)
  Sender: FDA-Public Use
  Company Number: US-AMGEN-KDL224191

PATIENT
  Sex: Female

DRUGS (2)
  1. ENBREL [Suspect]
     Indication: RHEUMATOID ARTHRITIS
     Dates: start: 20040101
  2. METHOTREXATE SODIUM [Concomitant]

REACTIONS (3)
  - COLONOSCOPY [None]
  - HIP ARTHROPLASTY [None]
  - KNEE ARTHROPLASTY [None]
